FAERS Safety Report 25768573 (Version 1)
Quarter: 2025Q3

REPORT INFORMATION
  Report Type: Spontaneous
  Country: GB (occurrence: GB)
  Receive Date: 20250905
  Receipt Date: 20250905
  Transmission Date: 20251020
  Serious: Yes (Other)
  Sender: ESPERION THERAPEUTICS
  Company Number: None

PATIENT
  Age: 65 Year
  Sex: Male
  Weight: 81 kg

DRUGS (6)
  1. BEMPEDOIC ACID [Suspect]
     Active Substance: BEMPEDOIC ACID
     Indication: Adverse drug reaction
     Dosage: 180 MG, QD (DAILY)
     Route: 065
     Dates: start: 20250803
  2. BEMPEDOIC ACID [Suspect]
     Active Substance: BEMPEDOIC ACID
     Indication: Low density lipoprotein increased
  3. ASPIRIN [Concomitant]
     Active Substance: ASPIRIN
     Indication: Product used for unknown indication
     Route: 065
  4. INCLISIRAN [Concomitant]
     Active Substance: INCLISIRAN
     Indication: Product used for unknown indication
     Route: 065
  5. LOSARTAN [Concomitant]
     Active Substance: LOSARTAN
     Indication: Product used for unknown indication
     Route: 065
  6. INDAPAMIDE [Concomitant]
     Active Substance: INDAPAMIDE
     Indication: Product used for unknown indication
     Route: 065

REACTIONS (1)
  - Arthralgia [Not Recovered/Not Resolved]

NARRATIVE: CASE EVENT DATE: 20250820
